FAERS Safety Report 14159510 (Version 1)
Quarter: 2017Q4

REPORT INFORMATION
  Report Type: Spontaneous
  Country: FR (occurrence: FR)
  Receive Date: 20171106
  Receipt Date: 20171106
  Transmission Date: 20180321
  Serious: Yes (Death, Hospitalization)
  Sender: FDA-Public Use
  Company Number: FR-ROCHE-2018124

PATIENT
  Age: 61 Year
  Sex: Female
  Weight: 43 kg

DRUGS (8)
  1. MACROGOL [Concomitant]
     Active Substance: POLYETHYLENE GLYCOLS
     Route: 065
  2. ZOPHREN [Concomitant]
     Active Substance: ONDANSETRON
     Route: 065
  3. EFFERALGAN [Concomitant]
     Active Substance: ACETAMINOPHEN
     Route: 065
  4. COTELLIC [Suspect]
     Active Substance: COBIMETINIB
     Indication: MALIGNANT MELANOMA STAGE IV
     Route: 048
     Dates: start: 20160707, end: 20160716
  5. ZELBORAF [Suspect]
     Active Substance: VEMURAFENIB
     Indication: MALIGNANT MELANOMA STAGE IV
     Route: 048
     Dates: start: 20160707, end: 20160716
  6. BROMAZEPAM [Concomitant]
     Active Substance: BROMAZEPAM
     Route: 065
  7. DOMPERIDONE [Concomitant]
     Active Substance: DOMPERIDONE
     Route: 065
  8. OXYCODONE [Concomitant]
     Active Substance: OXYCODONE
     Dosage: 2 MG PER HOUR, BOLUS OF 5 MG, INFUSION RATE 60 MIN
     Route: 065

REACTIONS (1)
  - Toxic skin eruption [Recovered/Resolved]

NARRATIVE: CASE EVENT DATE: 20160714
